FAERS Safety Report 7167016-6 (Version None)
Quarter: 2010Q4

REPORT INFORMATION
  Report Type: 
  Country: None (occurrence: None)
  Receive Date: 20101213
  Receipt Date: 20101213
  Transmission Date: 20110411
  Serious: No
  Sender: FDA-Public Use
  Company Number: None

PATIENT
  Age: 6 Month
  Sex: Female
  Weight: 7.7111 kg

DRUGS (1)
  1. HIGHLAND'S HOMEOPATHIC TEETHING 3X OF EACH INGREDIENT P+S LABORATORIES [Suspect]
     Indication: TEETHING
     Dosage: 2-3 TABLETS 4 TIMES PER DAY
     Dates: start: 20101108, end: 20101211

REACTIONS (6)
  - AGITATION [None]
  - CONSTIPATION [None]
  - DYSPNOEA [None]
  - ERYTHEMA [None]
  - FLUSHING [None]
  - PRODUCT QUALITY ISSUE [None]
